FAERS Safety Report 7516986-2 (Version None)
Quarter: 2011Q2

REPORT INFORMATION
  Report Type: 
  Country: None (occurrence: None)
  Receive Date: 20110502
  Receipt Date: 20110303
  Transmission Date: 20111010
  Serious: Yes (Hospitalization, Other)
  Sender: FDA-Public Use
  Company Number: AMAG201100062

PATIENT
  Age: 69 Year
  Sex: Male
  Weight: 101.5 kg

DRUGS (9)
  1. FERAHEME [Suspect]
     Indication: IRON DEFICIENCY ANAEMIA
     Dosage: 510 MG, SINGLE, INTRAVENOUS
     Route: 042
     Dates: start: 20110217, end: 20110217
  2. WARFARIN SODIUM [Concomitant]
  3. FUROSEMIDE (FUROSEMIDE SODIUM) [Concomitant]
  4. SIMVASTATIN [Concomitant]
  5. FERROUS SULFATE TAB [Concomitant]
  6. VALSARTAN [Concomitant]
  7. SODIUM BICARBONATE IN PLASTIC CONTAINER [Concomitant]
  8. AMLODIPINE BESYLATE [Concomitant]
  9. LEVOTHYROXINE SODIUM [Concomitant]

REACTIONS (1)
  - ACUTE MYOCARDIAL INFARCTION [None]
